FAERS Safety Report 7501945-6 (Version None)
Quarter: 2011Q2

REPORT INFORMATION
  Report Type: 
  Country: None (occurrence: None)
  Receive Date: 20110525
  Receipt Date: 20110518
  Transmission Date: 20111010
  Serious: No
  Sender: FDA-Public Use
  Company Number: US-PFIZER INC-2011108214

PATIENT
  Sex: Male

DRUGS (1)
  1. TOVIAZ [Suspect]
     Indication: CONSTIPATION
     Dosage: 5 MG, 1X/DAY
     Route: 048
     Dates: start: 20110518

REACTIONS (1)
  - POLYURIA [None]
